FAERS Safety Report 20685363 (Version 4)
Quarter: 2022Q2

REPORT INFORMATION
  Report Type: Spontaneous
  Country: US (occurrence: US)
  Receive Date: 20220407
  Receipt Date: 20220613
  Transmission Date: 20220720
  Serious: Yes (Hospitalization)
  Sender: FDA-Public Use
  Company Number: US-KARYOPHARM-2022KPT000408

PATIENT

DRUGS (32)
  1. XPOVIO [Suspect]
     Active Substance: SELINEXOR
     Indication: Plasma cell myeloma
     Dosage: 100 MG, WEEKLY
     Route: 048
     Dates: start: 20191004, end: 20200117
  2. XPOVIO [Suspect]
     Active Substance: SELINEXOR
     Dosage: 60 MG, WEEKLY
     Route: 048
     Dates: start: 20200117
  3. XPOVIO [Suspect]
     Active Substance: SELINEXOR
     Dosage: 60 MG, WEEKLY
     Route: 048
     Dates: start: 20220331, end: 2022
  4. XPOVIO [Suspect]
     Active Substance: SELINEXOR
     Dosage: 40 MG, WEEKLY
     Route: 048
     Dates: start: 2022, end: 202206
  5. LIPITOR [Concomitant]
     Active Substance: ATORVASTATIN CALCIUM
  6. BREO ELLIPTA [Concomitant]
     Active Substance: FLUTICASONE FUROATE\VILANTEROL TRIFENATATE
  7. CANDESARTAN CILEXETIL\HYDROCHLOROTHIAZIDE [Concomitant]
     Active Substance: CANDESARTAN CILEXETIL\HYDROCHLOROTHIAZIDE
  8. FLONASE [Concomitant]
     Active Substance: FLUTICASONE PROPIONATE
  9. DECADRON [Concomitant]
     Active Substance: DEXAMETHASONE
  10. ESOMEPRAZOLE [Concomitant]
     Active Substance: ESOMEPRAZOLE
  11. GABAPENTIN [Concomitant]
     Active Substance: GABAPENTIN
  12. HYDROMET [HOMATROPINE METHYLBROMIDE;HYDROCODONE BITARTRATE] [Concomitant]
  13. HYDROMORPHONE [Concomitant]
     Active Substance: HYDROMORPHONE
  14. KYPROLIS [Concomitant]
     Active Substance: CARFILZOMIB
  15. SYNTHROID [Concomitant]
     Active Substance: LEVOTHYROXINE SODIUM
  16. NEUPOGEN [Concomitant]
     Active Substance: FILGRASTIM
  17. OLANZAPINE [Concomitant]
     Active Substance: OLANZAPINE
  18. OXYCODONE [Concomitant]
     Active Substance: OXYCODONE
  19. PROAIR HFA [Concomitant]
     Active Substance: ALBUTEROL SULFATE
  20. PROMETHAZINE [Concomitant]
     Active Substance: PROMETHAZINE HYDROCHLORIDE
  21. TESSALON [Concomitant]
     Active Substance: BENZONATATE
  22. TRAMADOL [Concomitant]
     Active Substance: TRAMADOL
  23. VALACYCLOVIR HYDROCHLORIDE [Concomitant]
     Active Substance: VALACYCLOVIR HYDROCHLORIDE
  24. ZITHROMAX [Concomitant]
     Active Substance: AZITHROMYCIN DIHYDRATE
  25. DARZALEX [Concomitant]
     Active Substance: DARATUMUMAB
  26. ACYCLOVIR [Concomitant]
     Active Substance: ACYCLOVIR
  27. ZOFRAN [Concomitant]
     Active Substance: ONDANSETRON HYDROCHLORIDE
  28. LIDOCAINE [Concomitant]
     Active Substance: LIDOCAINE
  29. ACETAMINOPHEN\CODEINE PHOSPHATE [Concomitant]
     Active Substance: ACETAMINOPHEN\CODEINE PHOSPHATE
  30. IPRATROPIUM [Concomitant]
     Active Substance: IPRATROPIUM
  31. NORCO [Concomitant]
     Active Substance: ACETAMINOPHEN\HYDROCODONE BITARTRATE
  32. PROCHLORPERAZINE [Concomitant]
     Active Substance: PROCHLORPERAZINE

REACTIONS (3)
  - Pneumonia [Unknown]
  - Nausea [Not Recovered/Not Resolved]
  - Diarrhoea [Not Recovered/Not Resolved]

NARRATIVE: CASE EVENT DATE: 20220331
